FAERS Safety Report 4622747-4 (Version None)
Quarter: 2005Q1

REPORT INFORMATION
  Report Type: 
  Country: None (occurrence: None)
  Receive Date: 20050330
  Receipt Date: 20050317
  Transmission Date: 20050727
  Serious: Yes (Other)
  Sender: FDA-Public Use
  Company Number: US-JNJFOC-20050206300

PATIENT
  Sex: Male
  Weight: 74.84 kg

DRUGS (12)
  1. ET743 [Suspect]
     Dosage: TOTAL 36 CYCLES OF ET743
     Route: 042
     Dates: start: 20021219, end: 20041230
  2. ET743 [Suspect]
     Indication: LIPOSARCOMA RECURRENT
     Route: 042
     Dates: start: 20021219, end: 20041230
  3. DOXIL [Suspect]
     Indication: LIPOSARCOMA RECURRENT
     Dosage: RECEIVED 22 CYCLES OF THERAPY IN TOTAL.
     Route: 042
     Dates: start: 20021219, end: 20040304
  4. MESALAMINE [Concomitant]
  5. ZOMETA [Concomitant]
  6. XANAX [Concomitant]
  7. PERCOCET [Concomitant]
  8. PERCOCET [Concomitant]
  9. FLEXERIL [Concomitant]
  10. DURGESIC [Concomitant]
     Route: 062
  11. PROCRIT [Concomitant]
  12. FERROUS SULFATE TAB [Concomitant]
     Route: 049

REACTIONS (5)
  - DISEASE PROGRESSION [None]
  - DRUG INTERACTION [None]
  - EPSTEIN-BARR VIRUS ANTIBODY POSITIVE [None]
  - MYELODYSPLASTIC SYNDROME [None]
  - PANCYTOPENIA [None]
